FAERS Safety Report 5626095-5 (Version None)
Quarter: 2008Q1

REPORT INFORMATION
  Report Type: 
  Country: None (occurrence: None)
  Receive Date: 20080214
  Receipt Date: 20080201
  Transmission Date: 20080703
  Serious: Yes (Life-Threatening)
  Sender: FDA-Public Use
  Company Number: IT-AMGEN-UK253834

PATIENT
  Sex: Female

DRUGS (4)
  1. NEUPOGEN [Suspect]
     Indication: CHEMOTHERAPY
     Route: 058
     Dates: start: 20071024, end: 20071024
  2. FLUOROURACIL [Concomitant]
     Route: 042
     Dates: start: 20071023, end: 20071023
  3. ENDOXAN [Concomitant]
     Route: 042
     Dates: start: 20071023, end: 20071023
  4. FARMORUBICIN [Concomitant]
     Route: 042
     Dates: start: 20071023, end: 20071023

REACTIONS (5)
  - DYSPNOEA [None]
  - ERYTHEMA [None]
  - LARYNGEAL OEDEMA [None]
  - LOSS OF CONSCIOUSNESS [None]
  - PRURITUS [None]
